FAERS Safety Report 9095769 (Version 1)
Quarter: 2013Q1

REPORT INFORMATION
  Report Type: Spontaneous
  Country: NL (occurrence: None)
  Receive Date: 20130124
  Receipt Date: 20130124
  Transmission Date: 20140127
  Serious: Yes (Hospitalization)
  Sender: FDA-Public Use
  Company Number: 2013VX000231

PATIENT
  Age: 62 Year
  Sex: Female
  Weight: 49 kg

DRUGS (8)
  1. EFUDEX [Suspect]
     Indication: SKIN CANCER
     Route: 003
     Dates: start: 20121030, end: 20121111
  2. AZATHIOPRINE [Concomitant]
  3. PREDNISONE [Concomitant]
  4. NIFEDIPINE [Concomitant]
  5. PERINDOPRIL [Concomitant]
  6. CALCI CHEW D3 [Concomitant]
  7. PANTOPRAZOL [Concomitant]
  8. ATORVASTATIN [Concomitant]

REACTIONS (2)
  - Heart rate increased [None]
  - Affect lability [None]
